FAERS Safety Report 6598801-7 (Version None)
Quarter: 2010Q1

REPORT INFORMATION
  Report Type: 
  Country: None (occurrence: None)
  Receive Date: 20100217
  Receipt Date: 20100127
  Transmission Date: 20100710
  Serious: Yes (Hospitalization)
  Sender: FDA-Public Use
  Company Number: 2009AC000106

PATIENT
  Age: 28 Year
  Sex: Male

DRUGS (21)
  1. DIGOXIN [Suspect]
     Dosage: .125 MG; QD; PO
     Route: 048
     Dates: end: 20080801
  2. DIGOXIN [Suspect]
     Dosage: .25 MG; QD;
     Dates: start: 20080801
  3. DIGOXIN [Suspect]
     Dosage: 125 MCG; OD; PO
     Route: 048
     Dates: start: 20040101
  4. LIPITOR [Concomitant]
  5. CARVEDILOL [Concomitant]
  6. LASIX [Concomitant]
  7. INSULIN [Concomitant]
  8. METOLAZONE [Concomitant]
  9. PROMETHAZINE [Concomitant]
  10. HYDROCODONE [Concomitant]
  11. AZITHROMYC [Concomitant]
  12. LORTAB [Concomitant]
  13. PREDNISONE [Concomitant]
  14. PROTONIX [Concomitant]
  15. LASIX [Concomitant]
  16. COUMADIN [Concomitant]
  17. ALDACTONE [Concomitant]
  18. DIOVAN [Concomitant]
  19. COREG [Concomitant]
  20. INSULIN [Concomitant]
  21. POTASSIUM [Concomitant]

REACTIONS (16)
  - ANXIETY [None]
  - CARDIAC DISORDER [None]
  - CARDIAC FAILURE CONGESTIVE [None]
  - CHEST PAIN [None]
  - CONDITION AGGRAVATED [None]
  - DIZZINESS [None]
  - DYSSTASIA [None]
  - INJURY [None]
  - INSOMNIA [None]
  - MIGRAINE [None]
  - MONARTHRITIS [None]
  - MUSCULOSKELETAL STIFFNESS [None]
  - NEUROPATHY PERIPHERAL [None]
  - PAIN [None]
  - QUALITY OF LIFE DECREASED [None]
  - TENDERNESS [None]
